FAERS Safety Report 5611365-7 (Version None)
Quarter: 2008Q1

REPORT INFORMATION
  Report Type: 
  Country: None (occurrence: None)
  Receive Date: 20080201
  Receipt Date: 20080122
  Transmission Date: 20080703
  Serious: Yes (Life-Threatening, Hospitalization, Congenital Anomaly, Other)
  Sender: FDA-Public Use
  Company Number: GB-PFIZER INC-2008006539

PATIENT
  Age: 19 Day
  Sex: Female
  Weight: 4.3 kg

DRUGS (1)
  1. LUSTRAL [Suspect]
     Route: 064

REACTIONS (6)
  - CLEFT PALATE [None]
  - DEHYDRATION [None]
  - DRUG EXPOSURE DURING PREGNANCY [None]
  - IRRITABILITY [None]
  - VENTRICULAR SEPTAL DEFECT [None]
  - WEIGHT DECREASED [None]
